FAERS Safety Report 9625059 (Version 2)
Quarter: 2014Q1

REPORT INFORMATION
  Report Type: Spontaneous
  Country: US (occurrence: None)
  Receive Date: 20131010
  Receipt Date: 20131010
  Transmission Date: 20141002
  Serious: Yes (Hospitalization)
  Sender: FDA-Public Use
  Company Number: 1547804

PATIENT
  Age: 4 Year
  Sex: Male

DRUGS (24)
  1. METHOTREXATE INJECTION (METHOTREXATE) [Suspect]
     Indication: ACUTE LYMPHOCYTIC LEUKAEMIA
     Route: 037
     Dates: start: 20121031
  2. DASATINIB [Suspect]
     Indication: ACUTE LYMPHOCYTIC LEUKAEMIA
     Route: 048
     Dates: start: 20121029, end: 20121030
  3. CYCLOPHOSPHAMIDE [Suspect]
     Indication: ACUTE LYMPHOCYTIC LEUKAEMIA
     Dosage: 1000 MG/M2 ON DAY 1 AND 28 (1 HOUR)
     Route: 042
     Dates: start: 20121029
  4. CYTARABINE [Suspect]
     Indication: ACUTE LYMPHOCYTIC LEUKAEMIA
     Dosage: 75 MG/M2 DAY, INTRAVENOUS
     Route: 042
     Dates: start: 20121031
  5. MERCAPTOPURINE [Suspect]
     Indication: ACUTE LYMPHOCYTIC LEUKAEMIA
     Route: 048
     Dates: start: 20121029, end: 20121030
  6. MESNA [Suspect]
     Indication: ACUTE LYMPHOCYTIC LEUKAEMIA
     Dosage: 55 MG MILLIGRAM(S), 1 HOUR
     Dates: start: 20121222, end: 20121224
  7. DEXAMETHASONE [Suspect]
     Indication: ACUTE LYMPHOCYTIC LEUKAEMIA
     Dosage: 5.25 MG MILLIGRAM(S), 3 DAY
     Dates: start: 20121221, end: 20121225
  8. FOLINIC ACID [Suspect]
     Indication: ACUTE LYMPHOCYTIC LEUKAEMIA
     Dates: start: 20121222, end: 20121224
  9. VINCRISTINE [Suspect]
     Indication: ACUTE LYMPHOCYTIC LEUKAEMIA
     Dates: start: 20121222, end: 20121226
  10. PEG-L-ASPARAGINASE [Suspect]
     Dates: start: 20121226
  11. HYDROCORTISONE [Suspect]
     Indication: ACUTE LYMPHOCYTIC LEUKAEMIA
     Route: 037
  12. CHLORHEXIDINE [Concomitant]
  13. LACTULOSE [Concomitant]
  14. MACROGOL [Concomitant]
  15. SULFATRIM [Concomitant]
  16. ONDANSETRON [Concomitant]
  17. HEPARIN [Concomitant]
  18. SODIUM CHLORIDE [Concomitant]
  19. ACETAMINOPHEN [Concomitant]
  20. LIDOCAINE [Concomitant]
  21. CEFEPIME HYDROCHLORIDE [Concomitant]
  22. GUAIFENESIN [Concomitant]
  23. DEXTROSE W/POTASSIUM CHLORIDE AND NACL [Concomitant]
  24. NYSTATIN [Concomitant]

REACTIONS (4)
  - Febrile neutropenia [None]
  - Pyrexia [None]
  - Chills [None]
  - Haematotoxicity [None]
